FAERS Safety Report 13647253 (Version 4)
Quarter: 2017Q3

REPORT INFORMATION
  Report Type: Spontaneous
  Country: FR (occurrence: FR)
  Receive Date: 20170613
  Receipt Date: 20170728
  Transmission Date: 20171127
  Serious: Yes (Death, Other)
  Sender: FDA-Public Use
  Company Number: FR-VIIV HEALTHCARE LIMITED-FR2017GSK089866

PATIENT
  Age: 63 Year
  Sex: Male
  Weight: 78 kg

DRUGS (4)
  1. KARDEGIC [Concomitant]
     Active Substance: ASPIRIN LYSINE
     Indication: CEREBROVASCULAR ACCIDENT
     Dosage: 75 MG, 1D
     Dates: start: 2012
  2. TRIUMEQ [Suspect]
     Active Substance: ABACAVIR SULFATE\DOLUTEGRAVIR SODIUM\LAMIVUDINE
     Indication: HIV INFECTION
     Dosage: 1 DF, 1D
     Route: 048
     Dates: start: 20151113
  3. MODAMIDE [Concomitant]
     Active Substance: AMILORIDE HYDROCHLORIDE
     Indication: HYPERTENSION
     Dosage: 1 DF, BID
     Route: 048
     Dates: start: 2012
  4. NISIS [Concomitant]
     Active Substance: VALSARTAN
     Indication: HYPERTENSION
     Dosage: 80 MG, 1D
     Route: 048
     Dates: start: 2012

REACTIONS (2)
  - Cardiac arrest [Fatal]
  - Ventricular fibrillation [Fatal]

NARRATIVE: CASE EVENT DATE: 20170608
